FAERS Safety Report 9334647 (Version 1)
Quarter: 2013Q2

REPORT INFORMATION
  Report Type: Spontaneous
  Country: US (occurrence: US)
  Receive Date: 20130606
  Receipt Date: 20130606
  Transmission Date: 20140414
  Serious: Yes (Other)
  Sender: FDA-Public Use
  Company Number: US-BRISTOL-MYERS SQUIBB COMPANY-18972224

PATIENT
  Age: 67 Year
  Sex: Male
  Weight: 66.21 kg

DRUGS (2)
  1. COUMADIN [Suspect]
     Indication: DEEP VEIN THROMBOSIS
     Dosage: RX # 13171832 ?CUSTOMER ID # 8798
  2. ASPIRIN [Suspect]
     Indication: DEEP VEIN THROMBOSIS

REACTIONS (1)
  - Phlebitis [Unknown]
